FAERS Safety Report 17269419 (Version 1)
Quarter: 2020Q1

REPORT INFORMATION
  Report Type: Spontaneous
  Country: US (occurrence: US)
  Receive Date: 20200114
  Receipt Date: 20200114
  Transmission Date: 20200409
  Serious: Yes (Other)
  Sender: FDA-Public Use
  Company Number: NVSC2020US005563

PATIENT
  Age: 5 Year
  Sex: Female

DRUGS (2)
  1. ELDERBERRY [Concomitant]
     Active Substance: HERBALS
     Indication: PRODUCT USED FOR UNKNOWN INDICATION
     Route: 065
  2. PROMACTA [Suspect]
     Active Substance: ELTROMBOPAG OLAMINE
     Indication: IMMUNE THROMBOCYTOPENIC PURPURA
     Dosage: UNK
     Route: 065
     Dates: start: 201910

REACTIONS (3)
  - Product use complaint [Unknown]
  - Wrong technique in product usage process [Unknown]
  - Full blood count decreased [Unknown]
